FAERS Safety Report 5939188-X (Version None)
Quarter: 2008Q4

REPORT INFORMATION
  Report Type: 
  Country: None (occurrence: None)
  Receive Date: 20081103
  Receipt Date: 20081027
  Transmission Date: 20090506
  Serious: Yes (Hospitalization)
  Sender: FDA-Public Use
  Company Number: NL-ASTRAZENECA-2008AC02794

PATIENT
  Age: 20433 Day
  Sex: Female
  Weight: 76 kg

DRUGS (5)
  1. DIPRIVAN [Suspect]
     Dosage: 20 MG/ML
     Route: 042
     Dates: start: 20081013
  2. LIDOCAINI HCL [Suspect]
     Dosage: 10 MG/ML
     Route: 042
     Dates: start: 20081013
  3. CEFUROXIME [Suspect]
     Route: 042
     Dates: start: 20081013
  4. CLINDAMYCIN HCL [Suspect]
     Dosage: 150 MG/ML
     Route: 042
     Dates: start: 20081013
  5. ULTIVA [Suspect]
     Route: 042
     Dates: start: 20081013

REACTIONS (1)
  - VENOUS THROMBOSIS [None]
